FAERS Safety Report 17639300 (Version 11)
Quarter: 2021Q3

REPORT INFORMATION
  Report Type: Report from Study
  Country: BR (occurrence: BR)
  Receive Date: 20200407
  Receipt Date: 20210925
  Transmission Date: 20211014
  Serious: Yes (Other)
  Sender: FDA-Public Use
  Company Number: PHHY2018BR027602

PATIENT
  Age: 58 Year
  Sex: Male
  Weight: 71 kg

DRUGS (16)
  1. CALCIUM/VITAMIN D [Concomitant]
     Active Substance: CALCIUM\VITAMIN D
     Indication: OSTEOPOROSIS
     Dosage: 1 DF, QD (VITAMIN D 500 IU)
     Route: 048
  2. COSENTYX [Suspect]
     Active Substance: SECUKINUMAB
     Dosage: 150 MG, QMO
     Route: 058
  3. COSENTYX [Suspect]
     Active Substance: SECUKINUMAB
     Dosage: UNK, UNKNOWN
     Route: 065
     Dates: start: 20200613
  4. LOSARTAN. [Concomitant]
     Active Substance: LOSARTAN
     Indication: BLOOD PRESSURE INCREASED
     Dosage: 1 DF, QD
     Route: 048
  5. COSENTYX [Suspect]
     Active Substance: SECUKINUMAB
     Dosage: UNK, UNKNOWN
     Route: 058
     Dates: start: 20180228
  6. COSENTYX [Suspect]
     Active Substance: SECUKINUMAB
     Dosage: 150 MG, QMO
     Route: 058
     Dates: start: 20180713
  7. COSENTYX [Suspect]
     Active Substance: SECUKINUMAB
     Dosage: UNK, UNKNOWN
     Route: 065
     Dates: start: 2020
  8. OMEPRAZOLE. [Concomitant]
     Active Substance: OMEPRAZOLE
     Indication: GASTRITIS
     Dosage: UNK
     Route: 065
  9. COSENTYX [Suspect]
     Active Substance: SECUKINUMAB
     Dosage: UNK, UNKNOWN
     Route: 065
     Dates: start: 20210806
  10. COSENTYX [Suspect]
     Active Substance: SECUKINUMAB
     Dosage: 150 MG, QMO
     Route: 058
     Dates: start: 20180117
  11. COSENTYX [Suspect]
     Active Substance: SECUKINUMAB
     Dosage: UNK, UNKNOWN
     Route: 065
     Dates: start: 20190811
  12. CALCIUM/VITAMIN D [Concomitant]
     Active Substance: CALCIUM\VITAMIN D
     Indication: RHEUMATIC DISORDER
  13. COSENTYX [Suspect]
     Active Substance: SECUKINUMAB
     Indication: ANKYLOSING SPONDYLITIS
     Dosage: 150 MG, QMO
     Route: 058
     Dates: start: 20171220
  14. COSENTYX [Suspect]
     Active Substance: SECUKINUMAB
     Dosage: 150 MG, QMO (1 PEN)
     Route: 065
     Dates: start: 20210317
  15. COSENTYX [Suspect]
     Active Substance: SECUKINUMAB
     Dosage: UNK, UNKNOWN
     Route: 065
     Dates: start: 20210413
  16. DOLAMIN [Concomitant]
     Indication: MYALGIA
     Dosage: 1 DF, QD
     Route: 048

REACTIONS (56)
  - Musculoskeletal discomfort [Recovering/Resolving]
  - Posture abnormal [Not Recovered/Not Resolved]
  - Unevaluable event [Unknown]
  - Anosmia [Recovering/Resolving]
  - Memory impairment [Unknown]
  - Renal pain [Unknown]
  - Sensory disturbance [Recovering/Resolving]
  - Vomiting [Recovering/Resolving]
  - Suspected COVID-19 [Recovered/Resolved with Sequelae]
  - Rhinorrhoea [Recovered/Resolved]
  - Rheumatic disorder [Recovering/Resolving]
  - Feeling cold [Not Recovered/Not Resolved]
  - Hypophagia [Recovering/Resolving]
  - Abdominal pain upper [Not Recovered/Not Resolved]
  - Influenza [Unknown]
  - Fatty acid deficiency [Recovering/Resolving]
  - Pain [Not Recovered/Not Resolved]
  - Dysstasia [Not Recovered/Not Resolved]
  - Pyrexia [Not Recovered/Not Resolved]
  - Neuropathy peripheral [Not Recovered/Not Resolved]
  - Abdominal infection [Recovering/Resolving]
  - Discomfort [Recovering/Resolving]
  - Back disorder [Recovering/Resolving]
  - Cough [Recovered/Resolved]
  - Bone pain [Not Recovered/Not Resolved]
  - Intervertebral disc degeneration [Not Recovered/Not Resolved]
  - Neck pain [Recovering/Resolving]
  - Fatigue [Not Recovered/Not Resolved]
  - Osteomyelitis [Recovering/Resolving]
  - Chest pain [Unknown]
  - Gait disturbance [Recovering/Resolving]
  - Arthralgia [Recovered/Resolved]
  - Head discomfort [Unknown]
  - Muscular weakness [Not Recovered/Not Resolved]
  - Gait disturbance [Not Recovered/Not Resolved]
  - Lung disorder [Unknown]
  - Weight decreased [Recovered/Resolved]
  - Feeding disorder [Not Recovered/Not Resolved]
  - Weight decreased [Recovering/Resolving]
  - Back pain [Recovering/Resolving]
  - Spinal pain [Recovering/Resolving]
  - Chills [Recovering/Resolving]
  - Nervous system disorder [Recovering/Resolving]
  - Pain in extremity [Unknown]
  - Musculoskeletal stiffness [Unknown]
  - Bone disorder [Not Recovered/Not Resolved]
  - Neuralgia [Unknown]
  - Product dose omission issue [Unknown]
  - Therapeutic response shortened [Unknown]
  - Malaise [Recovering/Resolving]
  - Buttock injury [Unknown]
  - Walking disability [Not Recovered/Not Resolved]
  - Nausea [Unknown]
  - Arthralgia [Recovering/Resolving]
  - Nasal congestion [Recovering/Resolving]
  - Dysphonia [Not Recovered/Not Resolved]

NARRATIVE: CASE EVENT DATE: 20180605
